FAERS Safety Report 7646030-8 (Version None)
Quarter: 2011Q3

REPORT INFORMATION
  Report Type: 
  Country: None (occurrence: None)
  Receive Date: 20110801
  Receipt Date: 20110728
  Transmission Date: 20111222
  Serious: Yes (Death, Hospitalization)
  Sender: FDA-Public Use
  Company Number: JP-BRISTOL-MYERS SQUIBB COMPANY-15918378

PATIENT
  Age: 70 Year
  Sex: Male

DRUGS (1)
  1. ORENCIA [Suspect]
     Indication: MUSCULOSKELETAL PAIN
     Dosage: HAD 4 TO 5 DOSES. 1DF= 500MG/BODY.
     Route: 041

REACTIONS (1)
  - PNEUMONIA [None]
